FAERS Safety Report 9470570 (Version 2)
Quarter: 2013Q3

REPORT INFORMATION
  Report Type: Report from Study
  Country: CN (occurrence: CN)
  Receive Date: 20130822
  Receipt Date: 20130830
  Transmission Date: 20140515
  Serious: Yes (Hospitalization)
  Sender: FDA-Public Use
  Company Number: CN-ROCHE-1263881

PATIENT
  Age: 51 Year
  Sex: Female
  Weight: 59 kg

DRUGS (8)
  1. TRASTUZUMAB [Suspect]
     Indication: HER-2 POSITIVE BREAST CANCER
     Dosage: LOADING DOSE IN CYCLE 1 ONLY AS PER PROTOCOL.
     Route: 042
  2. TRASTUZUMAB [Suspect]
     Dosage: MAINTENANCE DOSE AS PER PROTOCOL (354MG EVERY 3 WEEKS).?THERAPY STOPPED ON 14/AUG/2013 AND RESTARTED
     Route: 042
  3. CARBOPLATIN [Suspect]
     Indication: HER-2 POSITIVE BREAST CANCER
     Dosage: DOSE: AUC 6. DOSE, FORM AND FREQUENCY AS PER PROTOCOL.?THERAPY STOPPED ON 14/AUG/2013 AND RESTARTED
     Route: 042
     Dates: start: 20130412
  4. DOCETAXEL [Suspect]
     Indication: HER-2 POSITIVE BREAST CANCER
     Dosage: DOSE, FORM AND FREQUENCY AS PER PROTOCOL. ?THERAPY STOPPED ON 14/AUG/2013 AND RESTARTED 23/AUG/2013.
     Route: 042
     Dates: start: 20130412
  5. POTASSIUM CHLORIDE [Concomitant]
     Route: 065
     Dates: start: 20130812, end: 20130814
  6. CEFATHIAMIDINE [Concomitant]
     Route: 065
     Dates: start: 20130813, end: 20130818
  7. PERTUZUMAB [Suspect]
     Indication: HER-2 POSITIVE BREAST CANCER
     Dosage: LOADING DOSE CYCLE 1 ONLY
     Route: 042
     Dates: start: 20130412, end: 20130412
  8. PERTUZUMAB [Suspect]
     Dosage: MAINTENANCE DOSE (START DATE ESTIMATED AS PER FREQUENCY)?LAST DOSE PRIOR TO SAE ONSET: 24/JUL/2013
     Route: 042
     Dates: start: 20130503

REACTIONS (1)
  - Platelet count decreased [Recovered/Resolved]
